FAERS Safety Report 15740701 (Version 1)
Quarter: 2018Q4

REPORT INFORMATION
  Report Type: Other
  Country: GR (occurrence: GR)
  Receive Date: 20181219
  Receipt Date: 20181219
  Transmission Date: 20190205
  Serious: Yes (Other)
  Sender: FDA-Public Use
  Company Number: GR-ACTELION-A-CH2018-183790

PATIENT
  Age: 19 Year
  Sex: Male

DRUGS (2)
  1. BOSENTAN. [Suspect]
     Active Substance: BOSENTAN
     Indication: PULMONARY ARTERIAL HYPERTENSION
     Route: 048
  2. COUMADIN [Concomitant]
     Active Substance: WARFARIN SODIUM

REACTIONS (7)
  - Dyspnoea [Unknown]
  - Atrial flutter [Unknown]
  - Cardioversion [Unknown]
  - Chordae tendinae rupture [Unknown]
  - Palpitations [Unknown]
  - Tricuspid valve disease [Unknown]
  - Tricuspid valve incompetence [Unknown]
